FAERS Safety Report 7044784-5 (Version None)
Quarter: 2010Q4

REPORT INFORMATION
  Report Type: 
  Country: None (occurrence: None)
  Receive Date: 20101014
  Receipt Date: 20100930
  Transmission Date: 20110411
  Serious: Yes (Hospitalization)
  Sender: FDA-Public Use
  Company Number: PHHY2010AU66470

PATIENT
  Sex: Female

DRUGS (1)
  1. CLOZARIL [Suspect]
     Dosage: 450 MG/DAY
     Dates: start: 20050606

REACTIONS (3)
  - NEUTROPHIL COUNT INCREASED [None]
  - POISONING DELIBERATE [None]
  - WHITE BLOOD CELL COUNT INCREASED [None]
